FAERS Safety Report 5848566-9 (Version None)
Quarter: 2008Q3

REPORT INFORMATION
  Report Type: 
  Country: None (occurrence: None)
  Receive Date: 20080818
  Receipt Date: 20080818
  Transmission Date: 20090109
  Serious: Yes (Hospitalization)
  Sender: FDA-Public Use
  Company Number: DE-ABBOTT-08P-062-0468074-00

PATIENT
  Sex: Female

DRUGS (5)
  1. HUMIRA [Suspect]
     Indication: DRUG USE FOR UNKNOWN INDICATION
     Dates: start: 20071001, end: 20071201
  2. ETANERCEPT [Suspect]
     Indication: DRUG USE FOR UNKNOWN INDICATION
     Dates: start: 20070101, end: 20071001
  3. ETANERCEPT [Suspect]
     Dates: start: 20071201
  4. HYDROXYCHLOROQUINE [Suspect]
     Indication: DRUG USE FOR UNKNOWN INDICATION
  5. AM [Concomitant]
     Indication: DRUG USE FOR UNKNOWN INDICATION
     Dates: start: 20050401

REACTIONS (3)
  - ARTHROSCOPY [None]
  - SYNOVECTOMY [None]
  - SYNOVIORTHESIS [None]
